FAERS Safety Report 5448540-0 (Version None)
Quarter: 2007Q3

REPORT INFORMATION
  Report Type: 
  Country: None (occurrence: None)
  Receive Date: 20070911
  Receipt Date: 20070904
  Transmission Date: 20080115
  Serious: Yes (Hospitalization, Other)
  Sender: FDA-Public Use
  Company Number: JP-ELI_LILLY_AND_COMPANY-JP200705006793

PATIENT
  Age: 69 Year
  Sex: Male
  Weight: 69.6 kg

DRUGS (7)
  1. HUMULIN 70/30 [Suspect]
     Indication: TYPE 2 DIABETES MELLITUS
     Dosage: 8 U, EACH EVENING
     Route: 058
     Dates: start: 20010907, end: 20011106
  2. HUMULIN 70/30 [Suspect]
     Dosage: 14 U, EACH MORNING
     Route: 058
     Dates: start: 20010907, end: 20011106
  3. ADALAT [Concomitant]
     Dosage: 20 MG, 2/D
     Route: 048
  4. TICLOPIDINE HCL [Concomitant]
     Dosage: 100 MG, 2/D
     Route: 048
  5. RENIVACE [Concomitant]
     Dosage: 5 MG, DAILY (1/D)
     Route: 048
  6. HUMALOG [Suspect]
     Dosage: UNK, UNK
     Route: 058
     Dates: start: 20011106
  7. HUMACART NPH [Suspect]
     Route: 058
     Dates: start: 20011106

REACTIONS (3)
  - ANTI-INSULIN ANTIBODY INCREASED [None]
  - HYPERGLYCAEMIA [None]
  - IMPAIRED INSULIN SECRETION [None]
